FAERS Safety Report 13144876 (Version 5)
Quarter: 2017Q3

REPORT INFORMATION
  Report Type: Report from Study
  Country: US (occurrence: US)
  Receive Date: 20170124
  Receipt Date: 20170713
  Transmission Date: 20171127
  Serious: Yes (Hospitalization)
  Sender: FDA-Public Use
  Company Number: PHHY2016US070389

PATIENT
  Age: 40 Year
  Sex: Male
  Weight: 63.5 kg

DRUGS (5)
  1. OXYCODONE [Concomitant]
     Active Substance: OXYCODONE
     Indication: PRODUCT USED FOR UNKNOWN INDICATION
     Dosage: UNK
     Route: 065
     Dates: start: 20170703
  2. NO TREATMENT RECEIVED [Suspect]
     Active Substance: UNSPECIFIED INGREDIENT
     Indication: PRODUCT USED FOR UNKNOWN INDICATION
     Dosage: UNK
     Route: 065
  3. ALBUTEROL. [Concomitant]
     Active Substance: ALBUTEROL
     Indication: ASTHMA
     Dosage: UNK
     Route: 065
  4. CETRIZINE [Concomitant]
     Active Substance: CETIRIZINE HYDROCHLORIDE
     Indication: HYPERSENSITIVITY
     Dosage: UNK
     Route: 065
  5. TECFIDERA [Suspect]
     Active Substance: DIMETHYL FUMARATE
     Indication: MULTIPLE SCLEROSIS
     Dosage: 240 MG, BID
     Route: 048
     Dates: start: 20170525

REACTIONS (18)
  - Haemorrhage urinary tract [Recovered/Resolved]
  - Haematoma [Unknown]
  - Renal neoplasm [Recovered/Resolved]
  - Hydronephrosis [Unknown]
  - Urinary bladder haemorrhage [Recovered/Resolved]
  - Haematuria [Recovered/Resolved with Sequelae]
  - Chromaturia [Recovered/Resolved with Sequelae]
  - Vascular pseudoaneurysm [Recovered/Resolved with Sequelae]
  - Pancreatic cyst [Unknown]
  - Dyspnoea [Recovered/Resolved]
  - Alanine aminotransferase increased [Unknown]
  - Asthma [Recovered/Resolved]
  - Central nervous system lesion [Unknown]
  - Clear cell renal cell carcinoma [Recovered/Resolved]
  - Aspartate aminotransferase increased [Unknown]
  - Back pain [Unknown]
  - Benign pancreatic neoplasm [Recovered/Resolved]
  - Blood creatinine increased [Unknown]

NARRATIVE: CASE EVENT DATE: 20160416
